FAERS Safety Report 12017087 (Version 2)
Quarter: 2016Q3

REPORT INFORMATION
  Report Type: Spontaneous
  Country: US (occurrence: US)
  Receive Date: 20160205
  Receipt Date: 20160922
  Transmission Date: 20161109
  Serious: No
  Sender: FDA-Public Use
  Company Number: US-AMGEN-USASP2016011910

PATIENT
  Age: 61 Year
  Sex: Male

DRUGS (9)
  1. NEUPOGEN [Suspect]
     Active Substance: FILGRASTIM
     Indication: NEUTROPENIA
     Dosage: UNK
     Route: 065
     Dates: start: 2008
  2. NEULASTA [Suspect]
     Active Substance: PEGFILGRASTIM
     Indication: NEUTROPENIA
     Dosage: 6 MG, UNK
     Route: 065
  3. WINRHO [Concomitant]
     Active Substance: HUMAN RHO(D) IMMUNE GLOBULIN
     Dosage: UNK
  4. NEULASTA [Suspect]
     Active Substance: PEGFILGRASTIM
     Dosage: 3 MG, UNK
     Route: 065
  5. METHOTREXATE. [Concomitant]
     Active Substance: METHOTREXATE
     Dosage: UNK
  6. NEULASTA [Suspect]
     Active Substance: PEGFILGRASTIM
     Dosage: 2 MG, UNK
     Route: 065
  7. RITUXAN [Concomitant]
     Active Substance: RITUXIMAB
     Dosage: UNK
  8. IMMUNOGLOBULIN                     /00025201/ [Concomitant]
     Active Substance: HUMAN IMMUNOGLOBULIN G
     Dosage: UNK
     Route: 042
  9. NEUPOGEN [Suspect]
     Active Substance: FILGRASTIM
     Dosage: 480 MCG, DAILY
     Route: 065

REACTIONS (2)
  - Bone pain [Unknown]
  - Drug effect decreased [Unknown]
